FAERS Safety Report 7606907-6 (Version None)
Quarter: 2011Q3

REPORT INFORMATION
  Report Type: 
  Country: None (occurrence: None)
  Receive Date: 20110713
  Receipt Date: 20110706
  Transmission Date: 20111222
  Serious: Yes (Hospitalization, Other)
  Sender: FDA-Public Use
  Company Number: FR-SANOFI-AVENTIS-2011SA031915

PATIENT
  Age: 69 Year
  Sex: Male
  Weight: 101 kg

DRUGS (5)
  1. BISOPROLOL FUMARATE [Concomitant]
     Indication: HYPERTENSION
  2. CABAZITAXEL [Suspect]
     Indication: PROSTATE CANCER
     Route: 042
     Dates: start: 20110316, end: 20110316
  3. CABAZITAXEL [Suspect]
     Route: 042
     Dates: start: 20110427, end: 20110427
  4. PRAVASTATIN [Concomitant]
  5. COZAAR [Concomitant]
     Indication: HYPERTENSION

REACTIONS (5)
  - PLEURISY [None]
  - DIARRHOEA [None]
  - GENERALISED OEDEMA [None]
  - OEDEMA [None]
  - WEIGHT INCREASED [None]
